FAERS Safety Report 5295983-4 (Version None)
Quarter: 2007Q2

REPORT INFORMATION
  Report Type: 
  Country: None (occurrence: None)
  Receive Date: 20070413
  Receipt Date: 20070402
  Transmission Date: 20071010
  Serious: Yes (Death, Hospitalization, Other)
  Sender: FDA-Public Use
  Company Number: CA-ELI_LILLY_AND_COMPANY-CA_050808622

PATIENT
  Age: 78 Year
  Sex: Female
  Weight: 65 kg

DRUGS (10)
  1. FORTEO [Suspect]
     Indication: OSTEOPOROSIS
     Dosage: 20 UG, DAILY (1/D)
     Dates: start: 20050529, end: 20050927
  2. PLAVIX [Concomitant]
     Dosage: UNK, UNKNOWN
  3. NOVASEN [Concomitant]
     Dosage: UNK, UNKNOWN
  4. NU-RANIT [Concomitant]
     Dosage: UNK, UNKNOWN
  5. SIMVASTATIN [Concomitant]
     Dosage: UNK, UNKNOWN
  6. PMS-ATENOLOL [Concomitant]
     Dosage: UNK, UNKNOWN
  7. NU-TRIAZIDE [Concomitant]
     Dosage: UNK, UNKNOWN
  8. CALCIUM [Concomitant]
     Dosage: UNK, UNKNOWN
  9. VITAMIN D [Concomitant]
     Dosage: UNK, UNKNOWN
  10. TYLENOL W/ CODEINE NO. 4 [Concomitant]
     Dosage: UNK, UNKNOWN

REACTIONS (18)
  - ABDOMINAL WALL CYST [None]
  - ASTHENIA [None]
  - BACK PAIN [None]
  - BEDRIDDEN [None]
  - BLOOD CALCIUM INCREASED [None]
  - CARDIAC FAILURE CONGESTIVE [None]
  - DEATH [None]
  - DECREASED APPETITE [None]
  - DIARRHOEA [None]
  - GAIT DISTURBANCE [None]
  - GENERAL PHYSICAL HEALTH DETERIORATION [None]
  - MASS EXCISION [None]
  - METASTATIC NEOPLASM [None]
  - MYALGIA [None]
  - OEDEMA PERIPHERAL [None]
  - POSTOPERATIVE WOUND INFECTION [None]
  - SYNCOPE [None]
  - WEIGHT DECREASED [None]
